APPROVED DRUG PRODUCT: LIPOSYN II 10%
Active Ingredient: SAFFLOWER OIL; SOYBEAN OIL
Strength: 5%;5% (5GM/100ML)
Dosage Form/Route: INJECTABLE;INJECTION
Application: N018997 | Product #001
Applicant: HOSPIRA INC
Approved: Aug 27, 1984 | RLD: No | RS: No | Type: DISCN